FAERS Safety Report 9442702 (Version 1)
Quarter: 2013Q3

REPORT INFORMATION
  Report Type: Spontaneous
  Country: BR (occurrence: BR)
  Receive Date: 20130806
  Receipt Date: 20130806
  Transmission Date: 20140515
  Serious: Yes (Death)
  Sender: FDA-Public Use
  Company Number: BR-PFIZER INC-2013132895

PATIENT
  Age: 85 Year
  Sex: Male
  Weight: 64 kg

DRUGS (4)
  1. SUTENT [Suspect]
     Indication: RENAL CELL CARCINOMA
     Dosage: 50 MG, (CYCLE 4 PER 2), 1X/DAY
     Route: 048
     Dates: start: 20130327
  2. TENADREN [Concomitant]
     Dosage: 1 TABLET OF 40 MG, 1X/DAY
  3. FERROUS SULFATE [Concomitant]
  4. VERTIX [Concomitant]
     Dosage: UNK

REACTIONS (21)
  - Death [Fatal]
  - Rash macular [Unknown]
  - Abdominal pain upper [Unknown]
  - Oral pain [Unknown]
  - Yellow skin [Unknown]
  - Skin fissures [Unknown]
  - Eye swelling [Unknown]
  - Dyspepsia [Unknown]
  - Diarrhoea [Recovered/Resolved]
  - Decreased appetite [Not Recovered/Not Resolved]
  - Dysgeusia [Not Recovered/Not Resolved]
  - Constipation [Not Recovered/Not Resolved]
  - Dizziness [Not Recovered/Not Resolved]
  - Dizziness postural [Not Recovered/Not Resolved]
  - Weight decreased [Unknown]
  - Dyspnoea [Not Recovered/Not Resolved]
  - Throat irritation [Not Recovered/Not Resolved]
  - Paraesthesia mucosal [Not Recovered/Not Resolved]
  - Pulmonary function test decreased [Not Recovered/Not Resolved]
  - Fluid retention [Not Recovered/Not Resolved]
  - Anaemia [Not Recovered/Not Resolved]
